FAERS Safety Report 13377018 (Version 1)
Quarter: 2017Q1

REPORT INFORMATION
  Report Type: Report from Study
  Country: DE (occurrence: DE)
  Receive Date: 20170328
  Receipt Date: 20170328
  Transmission Date: 20170429
  Serious: Yes (Hospitalization)
  Sender: FDA-Public Use
  Company Number: DE-SA-2017SA045275

PATIENT
  Age: 70 Year
  Sex: Male

DRUGS (14)
  1. FLUOROURACIL. [Suspect]
     Active Substance: FLUOROURACIL
     Indication: COLORECTAL CANCER METASTATIC
     Dosage: 1 IN 2 WEEK,
     Route: 042
     Dates: start: 20160405, end: 20160405
  2. FLUOROURACIL. [Suspect]
     Active Substance: FLUOROURACIL
     Indication: COLORECTAL CANCER METASTATIC
     Dosage: 1 IN 2 WEEK, ?DOSE 400
     Route: 042
     Dates: start: 20160517, end: 20160517
  3. BISOPROLOL [Concomitant]
     Active Substance: BISOPROLOL
  4. MCP [Concomitant]
     Active Substance: METOCLOPRAMIDE HYDROCHLORIDE
     Indication: HICCUPS
     Dates: start: 20160502
  5. OXALIPLATIN. [Suspect]
     Active Substance: OXALIPLATIN
     Indication: COLORECTAL CANCER METASTATIC
     Dosage: 1 IN 2 WEEK, DOSE 400
     Route: 042
     Dates: start: 20160517, end: 20160517
  6. INNOHEP [Concomitant]
     Active Substance: TINZAPARIN SODIUM
  7. OXALIPLATIN. [Suspect]
     Active Substance: OXALIPLATIN
     Indication: COLORECTAL CANCER METASTATIC
     Dosage: 1 IN 2 WEEK,
     Route: 042
     Dates: start: 20160405, end: 20160405
  8. FOLINIC ACID [Suspect]
     Active Substance: LEUCOVORIN
     Indication: COLORECTAL CANCER METASTATIC
     Dosage: 1 IN 2 WEEK,?DOSE 400
     Route: 042
     Dates: start: 20160517, end: 20160517
  9. BEVACIZUMAB [Suspect]
     Active Substance: BEVACIZUMAB
     Indication: COLORECTAL CANCER METASTATIC
     Dosage: 1 IN 2 WEEK
     Route: 042
     Dates: start: 20160405, end: 20160405
  10. LANTUS [Concomitant]
     Active Substance: INSULIN GLARGINE
  11. BEVACIZUMAB [Suspect]
     Active Substance: BEVACIZUMAB
     Indication: COLORECTAL CANCER METASTATIC
     Dosage: 1 IN 2 WEEK
     Route: 042
     Dates: start: 20160517, end: 20160517
  12. ATORVASTATIN [Concomitant]
     Active Substance: ATORVASTATIN
  13. FOLINIC ACID [Suspect]
     Active Substance: LEUCOVORIN
     Indication: COLORECTAL CANCER METASTATIC
     Dosage: 1 IN 2 WEEK
     Route: 042
     Dates: start: 20160405, end: 20160405
  14. NOVORAPID [Concomitant]
     Active Substance: INSULIN ASPART

REACTIONS (1)
  - Anastomotic leak [Recovered/Resolved]

NARRATIVE: CASE EVENT DATE: 20160524
